FAERS Safety Report 5299180-8 (Version None)
Quarter: 2007Q2

REPORT INFORMATION
  Report Type: 
  Country: None (occurrence: None)
  Receive Date: 20070417
  Receipt Date: 20070410
  Transmission Date: 20071010
  Serious: Yes (Hospitalization)
  Sender: FDA-Public Use
  Company Number: CA-JNJFOC-20070106745

PATIENT
  Sex: Female
  Weight: 43 kg

DRUGS (13)
  1. REMICADE [Suspect]
     Indication: CROHN'S DISEASE
     Route: 042
  2. HYDROCORTISONE [Concomitant]
     Indication: PREMEDICATION
     Route: 042
  3. AMITRIPTYLINE HCL [Concomitant]
  4. VENTOLIN [Concomitant]
  5. OMEPRAZOLE [Concomitant]
  6. SERAX [Concomitant]
  7. ZANAC [Concomitant]
  8. PREDNISONE TAB [Concomitant]
  9. ACTONEL [Concomitant]
  10. LOSEC [Concomitant]
  11. IMODIUM [Concomitant]
  12. BETOPTIC [Concomitant]
  13. VENTALIN HFA [Concomitant]

REACTIONS (3)
  - CHRONIC OBSTRUCTIVE PULMONARY DISEASE [None]
  - DYSPNOEA [None]
  - PNEUMONIA [None]
